FAERS Safety Report 24882937 (Version 2)
Quarter: 2025Q2

REPORT INFORMATION
  Report Type: Spontaneous
  Country: US (occurrence: US)
  Receive Date: 20250124
  Receipt Date: 20250529
  Transmission Date: 20250716
  Serious: No
  Sender: UCB
  Company Number: US-UCBSA-2024066740

PATIENT
  Sex: Male

DRUGS (1)
  1. ZILBRYSQ [Suspect]
     Active Substance: ZILUCOPLAN
     Indication: Product used for unknown indication
     Dosage: 23 MILLIGRAM, ONCE DAILY (QD)

REACTIONS (2)
  - Accidental exposure to product [Unknown]
  - Device issue [Unknown]
